FAERS Safety Report 14877198 (Version 1)
Quarter: 2018Q2

REPORT INFORMATION
  Report Type: Report from Study
  Country: JP (occurrence: JP)
  Receive Date: 20180510
  Receipt Date: 20180510
  Transmission Date: 20180711
  Serious: Yes (Hospitalization)
  Sender: FDA-Public Use
  Company Number: JP-EISAI MEDICAL RESEARCH-EC-2018-039671

PATIENT
  Age: 12 Year
  Sex: Female
  Weight: 15 kg

DRUGS (6)
  1. E KEPPRA [Concomitant]
     Active Substance: LEVETIRACETAM
  2. FYCOMPA [Suspect]
     Active Substance: PERAMPANEL
     Indication: EPILEPSY
  3. TEGRETOL [Concomitant]
     Active Substance: CARBAMAZEPINE
  4. FYCOMPA [Suspect]
     Active Substance: PERAMPANEL
     Indication: PARTIAL SEIZURES
     Route: 048
     Dates: start: 20170421, end: 20171225
  5. DEPAKENE [Concomitant]
     Active Substance: VALPROIC ACID
  6. ONON DRYSYRUP [Concomitant]

REACTIONS (2)
  - Increased bronchial secretion [Recovering/Resolving]
  - Pneumonia [Unknown]

NARRATIVE: CASE EVENT DATE: 20170510
